FAERS Safety Report 9325668 (Version 1)
Quarter: 2013Q2

REPORT INFORMATION
  Report Type: Spontaneous
  Country: US (occurrence: None)
  Receive Date: 20130531
  Receipt Date: 20130531
  Transmission Date: 20140414
  Serious: Yes (Other)
  Sender: FDA-Public Use
  Company Number: None

PATIENT
  Age: 73 Year
  Sex: Female
  Weight: 88.45 kg

DRUGS (1)
  1. MINOCIN [Suspect]
     Indication: ROSACEA
     Route: 048

REACTIONS (2)
  - Vertigo [None]
  - Clostridium difficile colitis [None]
